FAERS Safety Report 4737740-0 (Version None)
Quarter: 2005Q3

REPORT INFORMATION
  Report Type: 
  Country: None (occurrence: None)
  Receive Date: 20050802
  Receipt Date: 20050719
  Transmission Date: 20060218
  Serious: Yes (Hospitalization, Other)
  Sender: FDA-Public Use
  Company Number: 2005-DE-02837GD

PATIENT
  Age: 87 Year
  Sex: Male

DRUGS (5)
  1. FUORSEMIDE            (FUROSEMIDE) [Suspect]
  2. ALLOPURINOL [Suspect]
  3. ATENOLOL [Suspect]
  4. INSULIN [Suspect]
     Indication: DIABETES MELLITUS
  5. RAMIPRIL [Suspect]

REACTIONS (5)
  - BLOOD BICARBONATE DECREASED [None]
  - BLOOD UREA INCREASED [None]
  - DIABETES MELLITUS INADEQUATE CONTROL [None]
  - HEART RATE INCREASED [None]
  - TOXIC EPIDERMAL NECROLYSIS [None]
